FAERS Safety Report 10576303 (Version 2)
Quarter: 2015Q1

REPORT INFORMATION
  Report Type: Spontaneous
  Country: FR (occurrence: None)
  Receive Date: 20141107
  Receipt Date: 20150116
  Transmission Date: 20150720
  Serious: Yes (Hospitalization, Other)
  Sender: FDA-Public Use
  Company Number: FR2014GSK000126

PATIENT
  Age: 45 Year
  Sex: Female
  Weight: 58 kg

DRUGS (2)
  1. COMBIVIR [Suspect]
     Active Substance: LAMIVUDINE\ZIDOVUDINE
     Indication: PRODUCT USED FOR UNKNOWN INDICATION
     Route: 048
     Dates: start: 20110718, end: 20131025
  2. REYATAZ [Suspect]
     Active Substance: ATAZANAVIR SULFATE
     Indication: PRODUCT USED FOR UNKNOWN INDICATION
     Route: 048
     Dates: start: 20110718, end: 20131025

REACTIONS (8)
  - Hepatitis toxic [None]
  - Haemochromatosis [None]
  - Blood bilirubin increased [None]
  - Collateral circulation [None]
  - Hepatocellular injury [None]
  - Portal hypertension [None]
  - Cholestasis [None]
  - Jaundice [None]

NARRATIVE: CASE EVENT DATE: 20111013
